FAERS Safety Report 10587513 (Version 2)
Quarter: 2014Q4

REPORT INFORMATION
  Report Type: Spontaneous
  Country: US (occurrence: US)
  Receive Date: 20141117
  Receipt Date: 20141226
  Transmission Date: 20150529
  Serious: Yes (Other)
  Sender: FDA-Public Use
  Company Number: US-BAYER-2014-168597

PATIENT
  Age: 19 Year
  Sex: Female
  Weight: 48.98 kg

DRUGS (3)
  1. LEXAPRO [Concomitant]
     Active Substance: ESCITALOPRAM OXALATE
  2. SEROQUEL [Concomitant]
     Active Substance: QUETIAPINE FUMARATE
  3. MIRENA [Suspect]
     Active Substance: LEVONORGESTREL
     Indication: CONTRACEPTION
     Dosage: 20 MCG/24HR, CONT
     Route: 015
     Dates: start: 20070427, end: 20080110

REACTIONS (16)
  - Uterine perforation [None]
  - Internal injury [None]
  - Abdominal pain [None]
  - Injury [None]
  - Genital haemorrhage [None]
  - Depression [None]
  - Anxiety [None]
  - Pelvic pain [None]
  - Medical device discomfort [None]
  - Emotional distress [None]
  - Affect lability [None]
  - Fear [None]
  - Depressed mood [None]
  - Abortion of ectopic pregnancy [None]
  - Mental disorder [None]
  - Device issue [None]

NARRATIVE: CASE EVENT DATE: 200704
